FAERS Safety Report 23642975 (Version 1)
Quarter: 2024Q1

REPORT INFORMATION
  Report Type: Spontaneous
  Country: DE (occurrence: DE)
  Receive Date: 20240318
  Receipt Date: 20240318
  Transmission Date: 20240409
  Serious: Yes (Disabling, Other)
  Sender: FDA-Public Use
  Company Number: DE-Merck Healthcare KGaA-2024013092

PATIENT
  Age: 49 Year
  Sex: Female
  Weight: 50 kg

DRUGS (1)
  1. EUTHYROX [Suspect]
     Active Substance: LEVOTHYROXINE SODIUM
     Indication: Product used for unknown indication
     Dosage: (MONDAY, WEDNESDAY, FRIDAY - 75 MCG AND 100 MCG ON OTHER DAYS)

REACTIONS (7)
  - Weight decreased [Not Recovered/Not Resolved]
  - Disability [Unknown]
  - Hunger [Not Recovered/Not Resolved]
  - Blood uric acid increased [Unknown]
  - C-reactive protein increased [Unknown]
  - Pyrexia [Recovered/Resolved]
  - Restlessness [Unknown]
